FAERS Safety Report 9172380 (Version 1)
Quarter: 2012Q4

REPORT INFORMATION
  Report Type: 
  Country: US (occurrence: US)
  Receive Date: 20120911
  Receipt Date: 20120911
  Transmission Date: 20130627
  Serious: Yes (Hospitalization, Disabling, Other)
  Sender: FDA-Public Use
  Company Number: US-009507513-1107USA03584

PATIENT

DRUGS (8)
  1. FOSAMAX [Suspect]
     Indication: OSTEOPOROSIS
     Route: 048
     Dates: start: 1995
  2. FOSAMAX [Suspect]
     Indication: OSTEOPENIA
     Dosage: 70 mg, QW
     Route: 048
     Dates: start: 200101, end: 20080522
  3. FOSAMAX [Suspect]
     Dosage: 35 mg, UNK
     Route: 048
     Dates: start: 20080903
  4. FOSAMAX PLUS D [Suspect]
     Dosage: 70/2800
     Route: 048
     Dates: start: 20070430, end: 20080114
  5. ACTONEL [Suspect]
     Dosage: 35 mg, UNK
     Dates: start: 20080517, end: 20080909
  6. PLAQUENIL [Concomitant]
     Indication: RHEUMATOID ARTHRITIS
     Dosage: 200- 400 mg per day
     Dates: start: 1995
  7. BEXTRA (VALDECOXIB) [Concomitant]
  8. DYAZIDE [Concomitant]

REACTIONS (45)
  - Femur fracture [Recovering/Resolving]
  - Intervertebral disc disorder [Not Recovered/Not Resolved]
  - Joint injury [Unknown]
  - Knee arthroplasty [Unknown]
  - Fracture delayed union [Recovering/Resolving]
  - Atelectasis [Unknown]
  - Comminuted fracture [Unknown]
  - Intervertebral disc protrusion [Unknown]
  - Intervertebral disc degeneration [Unknown]
  - Spinal cord compression [Unknown]
  - Back pain [Unknown]
  - Arthralgia [Unknown]
  - Myelopathy [Unknown]
  - Spondylolisthesis [Unknown]
  - Melanosis coli [Unknown]
  - Osteoarthritis [Unknown]
  - Insomnia [Unknown]
  - Fatigue [Unknown]
  - Muscular weakness [Unknown]
  - Hypoaesthesia [Unknown]
  - Paraesthesia [Unknown]
  - Cervical myelopathy [Not Recovered/Not Resolved]
  - Sjogren^s syndrome [Not Recovered/Not Resolved]
  - Stress fracture [Recovering/Resolving]
  - Goitre [Unknown]
  - Thyroiditis subacute [Unknown]
  - Diabetes mellitus [Unknown]
  - Autoimmune thyroiditis [Unknown]
  - Palpitations [Recovered/Resolved]
  - Tachycardia [Unknown]
  - Temporomandibular joint syndrome [Unknown]
  - Calcification of muscle [Unknown]
  - Weight increased [Unknown]
  - Anaemia postoperative [Recovering/Resolving]
  - General physical health deterioration [Recovering/Resolving]
  - Soft tissue haemorrhage [Recovering/Resolving]
  - Smear cervix abnormal [Unknown]
  - Thyroid neoplasm [Unknown]
  - Anaemia [Unknown]
  - Arthralgia [Unknown]
  - Oedema peripheral [Unknown]
  - Pain in extremity [Unknown]
  - Gastritis [Unknown]
  - Oedema peripheral [Unknown]
  - Drug hypersensitivity [Unknown]
